FAERS Safety Report 6217360-1 (Version None)
Quarter: 2009Q2

REPORT INFORMATION
  Report Type: 
  Country: None (occurrence: None)
  Receive Date: 20090608
  Receipt Date: 20080811
  Transmission Date: 20091009
  Serious: No
  Sender: FDA-Public Use
  Company Number: A0742195A

PATIENT
  Age: 44 Year
  Sex: Female

DRUGS (7)
  1. WELLBUTRIN XL [Suspect]
     Indication: DEPRESSION
     Dosage: 300MG PER DAY
     Route: 048
  2. LYRICA [Concomitant]
  3. LUNESTA [Concomitant]
  4. LAMICTAL [Concomitant]
  5. PEPCID [Concomitant]
  6. KLONOPIN [Concomitant]
  7. PREMARIN [Concomitant]

REACTIONS (4)
  - MIGRAINE [None]
  - MYALGIA [None]
  - RASH [None]
  - VOMITING [None]
